FAERS Safety Report 15857732 (Version 1)
Quarter: 2018Q4

REPORT INFORMATION
  Report Type: Spontaneous
  Country: US (occurrence: US)
  Receive Date: 20181227
  Receipt Date: 20181227
  Transmission Date: 20190205
  Serious: No
  Sender: FDA-Public Use
  Company Number: None

PATIENT
  Age: 47 Year
  Sex: Male

DRUGS (1)
  1. MAVYRET [Suspect]
     Active Substance: GLECAPREVIR\PIBRENTASVIR
     Indication: HEPATITIS C
     Dates: start: 20181103

REACTIONS (4)
  - Nausea [None]
  - Headache [None]
  - Mouth haemorrhage [None]
  - Abdominal distension [None]

NARRATIVE: CASE EVENT DATE: 20181220
